FAERS Safety Report 20097280 (Version 2)
Quarter: 2021Q4

REPORT INFORMATION
  Report Type: Spontaneous
  Country: DE (occurrence: DE)
  Receive Date: 20211122
  Receipt Date: 20211228
  Transmission Date: 20220303
  Serious: Yes (Other)
  Sender: FDA-Public Use
  Company Number: DE-NOVARTISPH-NVSC2021DE261637

PATIENT
  Sex: Female

DRUGS (10)
  1. PEMETREXED [Suspect]
     Active Substance: PEMETREXED
     Indication: Lung adenocarcinoma
     Dosage: 1ST LINE, 4 CYCLES
     Route: 065
     Dates: start: 20190411, end: 20190613
  2. DOCETAXEL [Suspect]
     Active Substance: DOCETAXEL
     Indication: Lung adenocarcinoma
     Dosage: 75 MG (2ND LINE, 6 CYCLES, 75MG/M2)
     Route: 065
     Dates: start: 20190704, end: 20191017
  3. DOCETAXEL [Suspect]
     Active Substance: DOCETAXEL
     Dosage: 75 MG/M2,  2 CYCLES
     Route: 065
     Dates: start: 20210204, end: 20210225
  4. CARBOPLATIN [Suspect]
     Active Substance: CARBOPLATIN
     Indication: Lung adenocarcinoma
     Dosage: UNK UNK, CYCLICAL
     Route: 065
     Dates: start: 20190411, end: 20190613
  5. NINTEDANIB [Suspect]
     Active Substance: NINTEDANIB
     Indication: Lung adenocarcinoma
     Dosage: 400 MG, QD (2ND LINE, DAY 2-21, 2 X 200MG)
     Route: 065
     Dates: start: 20190705, end: 20190904
  6. NINTEDANIB [Suspect]
     Active Substance: NINTEDANIB
     Dosage: 300 MG, QD (2ND LINE, 2 X 150MG)
     Route: 065
     Dates: start: 20190906
  7. NINTEDANIB [Suspect]
     Active Substance: NINTEDANIB
     Dosage: UNK
     Route: 065
     Dates: start: 20191018, end: 20210204
  8. PEMBROLIZUMAB [Suspect]
     Active Substance: PEMBROLIZUMAB
     Indication: Lung adenocarcinoma
     Dosage: 1ST LINE, 4 CYCLES, (POWDER FOR INJECTION)
     Route: 065
     Dates: start: 20190411, end: 20190613
  9. DENOSUMAB [Suspect]
     Active Substance: DENOSUMAB
     Indication: Lung adenocarcinoma
     Dosage: UNK
     Route: 065
     Dates: start: 20190411
  10. DEXAMETHASONE [Concomitant]
     Active Substance: DEXAMETHASONE
     Indication: Product used for unknown indication
     Dosage: 4MG/DIE
     Route: 065

REACTIONS (4)
  - Diarrhoea [Unknown]
  - Malignant neoplasm progression [Unknown]
  - Nausea [Unknown]
  - Therapy partial responder [Unknown]

NARRATIVE: CASE EVENT DATE: 20190601
